FAERS Safety Report 15119377 (Version 5)
Quarter: 2019Q1

REPORT INFORMATION
  Report Type: Spontaneous
  Country: IN (occurrence: IN)
  Receive Date: 20180709
  Receipt Date: 20190117
  Transmission Date: 20190417
  Serious: Yes (Death, Hospitalization, Other)
  Sender: FDA-Public Use
  Company Number: IN-ASTELLAS-2018US030032

PATIENT
  Age: 82 Year
  Sex: Male

DRUGS (7)
  1. WYSOLONE [Suspect]
     Active Substance: PREDNISOLONE
     Indication: ASTHMA
  2. WYSOLONE [Suspect]
     Active Substance: PREDNISOLONE
     Indication: SKIN DISORDER
  3. WYSOLONE [Suspect]
     Active Substance: PREDNISOLONE
     Indication: EYE DISORDER
  4. WYSOLONE [Suspect]
     Active Substance: PREDNISOLONE
     Indication: RHEUMATIC DISORDER
  5. WYSOLONE [Suspect]
     Active Substance: PREDNISOLONE
     Indication: NEPHROTIC SYNDROME
  6. XTANDI [Suspect]
     Active Substance: ENZALUTAMIDE
     Indication: HORMONE-REFRACTORY PROSTATE CANCER
     Route: 048
     Dates: start: 2017, end: 20180601
  7. WYSOLONE [Suspect]
     Active Substance: PREDNISOLONE
     Indication: HYPERSENSITIVITY
     Dosage: 5 MG (DAILY DOSE), TWICE DAILY
     Route: 048
     Dates: start: 201709, end: 2018

REACTIONS (7)
  - Intestinal obstruction [Recovered/Resolved]
  - Electrolyte imbalance [Recovered/Resolved]
  - Malignant neoplasm progression [Unknown]
  - General physical health deterioration [Unknown]
  - Stupor [Unknown]
  - Death [Fatal]
  - Prostatic specific antigen increased [Unknown]

NARRATIVE: CASE EVENT DATE: 2018
